FAERS Safety Report 15011098 (Version 1)
Quarter: 2018Q2

REPORT INFORMATION
  Report Type: Spontaneous
  Country: JP (occurrence: JP)
  Receive Date: 20180614
  Receipt Date: 20180614
  Transmission Date: 20180711
  Serious: Yes (Hospitalization)
  Sender: FDA-Public Use
  Company Number: JP-ROCHE-2139975

PATIENT
  Sex: Female

DRUGS (4)
  1. BONVIVA [Suspect]
     Active Substance: IBANDRONATE SODIUM
     Indication: OSTEOPOROSIS
     Route: 048
  2. ENEVO (DEXTRIN, ISOLATED MILK PROTEIN, HIGH OLEIC ACID SUNFLOWER OIL, [Concomitant]
     Route: 065
  3. PURSENNID [Concomitant]
     Active Substance: SENNOSIDES A AND B
     Route: 065
  4. EDIROL [Suspect]
     Active Substance: ELDECALCITOL
     Indication: OSTEOPOROSIS
     Dosage: 0.75 MCG
     Route: 048

REACTIONS (2)
  - Hypercalcaemia [Unknown]
  - Hypervitaminosis [Recovered/Resolved]
